FAERS Safety Report 15021272 (Version 1)
Quarter: 2018Q2

REPORT INFORMATION
  Report Type: Report from Study
  Country: MX (occurrence: MX)
  Receive Date: 20180618
  Receipt Date: 20180618
  Transmission Date: 20180711
  Serious: Yes (Death)
  Sender: FDA-Public Use
  Company Number: MX-CELGENEUS-MEX-20180604870

PATIENT
  Age: 74 Year
  Sex: Male

DRUGS (1)
  1. VIDAZA [Suspect]
     Active Substance: AZACITIDINE
     Indication: ACUTE MYELOID LEUKAEMIA
     Route: 065
     Dates: start: 20170606, end: 20170828

REACTIONS (1)
  - Death [Fatal]

NARRATIVE: CASE EVENT DATE: 20180329
